FAERS Safety Report 8426186 (Version 4)
Quarter: 2013Q2

REPORT INFORMATION
  Report Type: Report from Study
  Country: DE (occurrence: DE)
  Receive Date: 20120224
  Receipt Date: 20130507
  Transmission Date: 20140414
  Serious: Yes (Hospitalization)
  Sender: FDA-Public Use
  Company Number: DE-TEVA-323340GER

PATIENT
  Age: 64 Year
  Sex: Female
  Weight: 69 kg

DRUGS (5)
  1. LIPOSOMAL DOXORUBICIN (MYOCET) [Suspect]
     Indication: BREAST CANCER
     Route: 042
     Dates: start: 20120105
  2. CARBOPLATIN [Suspect]
     Indication: BREAST CANCER
     Route: 042
     Dates: start: 20120105
  3. TAXOL [Suspect]
     Indication: BREAST CANCER
     Route: 042
     Dates: start: 20120105
  4. HERCEPTIN [Suspect]
     Indication: BREAST CANCER
     Route: 042
     Dates: start: 20120105
  5. LAPATINIB [Suspect]
     Indication: BREAST CANCER
     Dosage: 750 MILLIGRAM DAILY;
     Route: 048
     Dates: start: 20120105

REACTIONS (4)
  - Hypocalcaemia [Unknown]
  - Hypokalaemia [Unknown]
  - Muscle spasms [Recovered/Resolved]
  - Diarrhoea [Unknown]
